FAERS Safety Report 19060291 (Version 1)
Quarter: 2021Q1

REPORT INFORMATION
  Report Type: Spontaneous
  Country: US (occurrence: US)
  Receive Date: 20210325
  Receipt Date: 20210325
  Transmission Date: 20210420
  Serious: Yes (Other)
  Sender: FDA-Public Use
  Company Number: US-GLAXOSMITHKLINE-US2021GSK067871

PATIENT
  Sex: Male

DRUGS (5)
  1. ZANTAC [Suspect]
     Active Substance: RANITIDINE HYDROCHLORIDE
     Indication: MYOCARDIAL INFARCTION
     Dosage: 300 MG, QD
     Route: 065
     Dates: start: 200410, end: 201910
  2. RANITIDINE. [Suspect]
     Active Substance: RANITIDINE
     Indication: MYOCARDIAL INFARCTION
     Dosage: 300 MG, QD
     Route: 065
     Dates: start: 200410, end: 201910
  3. ZANTAC [Suspect]
     Active Substance: RANITIDINE HYDROCHLORIDE
     Indication: MYOCARDIAL INFARCTION
     Dosage: UNK, QD
     Route: 065
     Dates: start: 200401, end: 201910
  4. RANITIDINE. [Suspect]
     Active Substance: RANITIDINE
     Indication: MYOCARDIAL INFARCTION
     Dosage: 300 MG, QD
     Route: 065
     Dates: start: 200410, end: 201910
  5. ZANTAC [Suspect]
     Active Substance: RANITIDINE HYDROCHLORIDE
     Indication: MYOCARDIAL INFARCTION
     Dosage: 300 MG
     Route: 065
     Dates: start: 200410, end: 201910

REACTIONS (1)
  - Prostate cancer [Unknown]
